FAERS Safety Report 10018878 (Version 2)
Quarter: 2014Q2

REPORT INFORMATION
  Report Type: Spontaneous
  Country: JP (occurrence: JP)
  Receive Date: 20140318
  Receipt Date: 20140408
  Transmission Date: 20141212
  Serious: No
  Sender: FDA-Public Use
  Company Number: JP-TAKEDA-2014TEU002175

PATIENT
  Age: 55 Year
  Sex: Male

DRUGS (1)
  1. TACHOSIL [Suspect]
     Indication: PROPHYLAXIS
     Dosage: 1 SHEETS OF REGULAR SIZE
     Dates: start: 20130410

REACTIONS (1)
  - Carcinoembryonic antigen increased [Recovered/Resolved]
